FAERS Safety Report 5611348-7 (Version None)
Quarter: 2008Q1

REPORT INFORMATION
  Report Type: 
  Country: None (occurrence: None)
  Receive Date: 20080201
  Receipt Date: 20080121
  Transmission Date: 20080703
  Serious: Yes (Other)
  Sender: FDA-Public Use
  Company Number: GB-PFIZER INC-2008005797

PATIENT
  Age: 56 Year
  Sex: Female

DRUGS (10)
  1. LYRICA [Suspect]
     Indication: NEURALGIA
     Route: 048
  2. AMITRIPTYLINE HCL [Concomitant]
  3. DOMPERIDONE [Concomitant]
  4. ESOMEPRAZOLE [Concomitant]
  5. FLUOXETINE [Concomitant]
  6. FUROSEMIDE [Concomitant]
  7. LEVOTHYROXINE SODIUM [Concomitant]
  8. MORPHINE SULFATE [Concomitant]
     Route: 048
  9. TRAMADOL HCL [Concomitant]
  10. ALL OTHER THERAPEUTIC PRODUCTS [Concomitant]

REACTIONS (5)
  - ABDOMINAL DISTENSION [None]
  - DIARRHOEA [None]
  - JOINT SWELLING [None]
  - PARAESTHESIA [None]
  - SWELLING FACE [None]
